FAERS Safety Report 19218787 (Version 1)
Quarter: 2021Q2

REPORT INFORMATION
  Report Type: Spontaneous
  Country: US (occurrence: US)
  Receive Date: 20210505
  Receipt Date: 20210505
  Transmission Date: 20210717
  Serious: Yes (Hospitalization)
  Sender: FDA-Public Use
  Company Number: US-GLAXOSMITHKLINE-US2021095976

PATIENT
  Sex: Female

DRUGS (1)
  1. FLOVENT HFA [Suspect]
     Active Substance: FLUTICASONE PROPIONATE
     Indication: ASTHMA
     Dosage: 1 PUFF(S), BID (110 MCG)
     Route: 055

REACTIONS (4)
  - Incorrect dosage administered [Unknown]
  - Hospitalisation [Unknown]
  - Product dose omission issue [Unknown]
  - Wrong technique in product usage process [Unknown]
